FAERS Safety Report 18456628 (Version 2)
Quarter: 2020Q4

REPORT INFORMATION
  Report Type: Spontaneous
  Country: US (occurrence: US)
  Receive Date: 20201103
  Receipt Date: 20201113
  Transmission Date: 20210114
  Serious: No
  Sender: FDA-Public Use
  Company Number: US-SUNOVION-2020SUN003185

PATIENT
  Age: 66 Year
  Sex: Male

DRUGS (1)
  1. LONHALA MAGNAIR [Suspect]
     Active Substance: GLYCOPYRROLATE
     Indication: DYSPNOEA
     Dosage: 25 ?G, BID
     Route: 055
     Dates: start: 202001, end: 20201020

REACTIONS (6)
  - Dyspnoea [Not Recovered/Not Resolved]
  - Device issue [Recovered/Resolved]
  - Device breakage [Recovered/Resolved]
  - Product dose omission issue [Unknown]
  - Off label use [Unknown]
  - Device leakage [Recovered/Resolved]

NARRATIVE: CASE EVENT DATE: 20201021
